FAERS Safety Report 25205771 (Version 1)
Quarter: 2025Q2

REPORT INFORMATION
  Report Type: Spontaneous
  Country: ES (occurrence: ES)
  Receive Date: 20250417
  Receipt Date: 20250417
  Transmission Date: 20250717
  Serious: Yes (Other)
  Sender: CHEPLAPHARM
  Company Number: None

PATIENT
  Age: 65 Year
  Sex: Female

DRUGS (14)
  1. OLANZAPINE [Suspect]
     Active Substance: OLANZAPINE
     Indication: Insomnia
     Dosage: 2.5MG 0-0-1 (MAY TAKE EXTRA TABLET IF INSOMNIA)?DAILY DOSE: 2.5 MILLIGRAM
     Route: 048
     Dates: start: 20230707
  2. ATENOLOL [Suspect]
     Active Substance: ATENOLOL
     Indication: Hypertension
     Dosage: ATENOLOL 50 MG 0-0-0.5 ?DAILY DOSE: 25 MILLIGRAM
     Route: 048
     Dates: start: 20220510, end: 20230712
  3. ATENOLOL [Suspect]
     Active Substance: ATENOLOL
     Indication: Hypertension
     Route: 048
  4. LORAZEPAM [Concomitant]
     Active Substance: LORAZEPAM
  5. LORAZEPAM [Concomitant]
     Active Substance: LORAZEPAM
  6. RISPERIDONE [Concomitant]
     Active Substance: RISPERIDONE
     Dosage: 0.5MG 0-0-1 ?DAILY DOSE: 0.5 MILLIGRAM
  7. ACTONEL [Concomitant]
     Active Substance: RISEDRONATE SODIUM
     Dosage: 35 MG BIWEEKLY
  8. Resinsodium [Concomitant]
  9. RENVELA [Concomitant]
     Active Substance: SEVELAMER CARBONATE
  10. FOSRENOL [Concomitant]
     Active Substance: LANTHANUM CARBONATE
  11. AMLODIPINE [Concomitant]
     Active Substance: AMLODIPINE BESYLATE
     Indication: Hypertension
  12. ASPIRIN [Concomitant]
     Active Substance: ASPIRIN
     Dosage: 100MG 0-1-0 ?DAILY DOSE: 100 MILLIGRAM
  13. OMEPRAZOLE [Concomitant]
     Active Substance: OMEPRAZOLE
  14. CAPTOPRIL [Concomitant]
     Active Substance: CAPTOPRIL
     Indication: Hypertension
     Route: 048

REACTIONS (2)
  - Sinus bradycardia [Recovered/Resolved]
  - Off label use [Not Recovered/Not Resolved]

NARRATIVE: CASE EVENT DATE: 20230707
